FAERS Safety Report 10981900 (Version 2)
Quarter: 2015Q2

REPORT INFORMATION
  Report Type: Report from Study
  Country: VE (occurrence: VE)
  Receive Date: 20150402
  Receipt Date: 20150410
  Transmission Date: 20150821
  Serious: Yes (Other)
  Sender: FDA-Public Use
  Company Number: VE-ABBVIE-15P-178-1367992-00

PATIENT
  Age: 46 Year
  Sex: Male

DRUGS (1)
  1. HUMIRA [Suspect]
     Active Substance: ADALIMUMAB
     Indication: PSORIASIS
     Route: 065
     Dates: start: 20110520, end: 201409

REACTIONS (1)
  - Tuberculin test positive [Recovering/Resolving]

NARRATIVE: CASE EVENT DATE: 201409
